FAERS Safety Report 17520349 (Version 1)
Quarter: 2020Q1

REPORT INFORMATION
  Report Type: Spontaneous
  Country: ES (occurrence: ES)
  Receive Date: 20200309
  Receipt Date: 20200309
  Transmission Date: 20200409
  Serious: Yes (Other)
  Sender: FDA-Public Use
  Company Number: ES-009507513-2003ESP001920

PATIENT
  Age: 70 Year
  Sex: Male

DRUGS (3)
  1. CDDP [Suspect]
     Active Substance: CISPLATIN
     Indication: LUNG ADENOCARCINOMA STAGE IV
     Dosage: UNK, CYCLICAL
     Dates: end: 2020
  2. PEMETREXED DISODIUM [Suspect]
     Active Substance: PEMETREXED DISODIUM
     Indication: LUNG ADENOCARCINOMA STAGE IV
     Dosage: UNK, CYCLICAL
     Dates: end: 2020
  3. PEMBROLIZUMAB. [Suspect]
     Active Substance: PEMBROLIZUMAB
     Indication: LUNG ADENOCARCINOMA STAGE IV
     Dosage: UNK, CYCLICAL

REACTIONS (9)
  - Musculoskeletal discomfort [Unknown]
  - Renal cyst [Unknown]
  - Chest discomfort [Unknown]
  - Asthenia [Unknown]
  - Acute kidney injury [Unknown]
  - Oliguria [Unknown]
  - Joint swelling [Unknown]
  - Dyspnoea [Unknown]
  - Cough [Unknown]

NARRATIVE: CASE EVENT DATE: 2020
